FAERS Safety Report 16644237 (Version 25)
Quarter: 2022Q4

REPORT INFORMATION
  Report Type: Report from Study
  Country: US (occurrence: US)
  Receive Date: 20190729
  Receipt Date: 20221109
  Transmission Date: 20230113
  Serious: Yes (Hospitalization, Other)
  Sender: FDA-Public Use
  Company Number: US-NOVARTISPH-PHEH2019US031389

PATIENT
  Age: 62 Year
  Sex: Female
  Weight: 112 kg

DRUGS (9)
  1. TREPROSTINIL [Suspect]
     Active Substance: TREPROSTINIL
     Indication: Pulmonary arterial hypertension
     Dosage: UNK, 57 NG/KG/MIN, CONT
     Route: 042
     Dates: start: 20190424
  2. TREPROSTINIL [Suspect]
     Active Substance: TREPROSTINIL
     Dosage: UNK, 66 NG/KG/MIN, CONT
     Route: 042
  3. TREPROSTINIL [Suspect]
     Active Substance: TREPROSTINIL
     Dosage: UNK, 66 NG/KG/MIN, CONT
     Route: 042
  4. TREPROSTINIL [Suspect]
     Active Substance: TREPROSTINIL
     Dosage: UNK, 66 NG/KG/MIN, CONT
     Route: 042
  5. TREPROSTINIL [Suspect]
     Active Substance: TREPROSTINIL
     Dosage: UNK, 66 NG/KG/MIN, CONT
     Route: 042
  6. TREPROSTINIL [Suspect]
     Active Substance: TREPROSTINIL
     Dosage: UNK, 74 NG/KG/MIN, CONT
     Route: 042
  7. TREPROSTINIL [Suspect]
     Active Substance: TREPROSTINIL
     Dosage: UNK, 74 NG/KG/MIN, CONT
     Route: 042
  8. REVATIO [Concomitant]
     Active Substance: SILDENAFIL CITRATE
     Indication: Product used for unknown indication
     Dosage: UNK
     Route: 065
  9. SILDENAFIL CITRATE [Concomitant]
     Active Substance: SILDENAFIL CITRATE
     Indication: Product used for unknown indication
     Dosage: UNK
     Route: 065

REACTIONS (23)
  - Myocardial infarction [Unknown]
  - Hypervolaemia [Unknown]
  - Fluid retention [Unknown]
  - Wound necrosis [Unknown]
  - Wound [Unknown]
  - Wound infection [Unknown]
  - Oedema [Unknown]
  - Epistaxis [Unknown]
  - Cardiac failure congestive [Unknown]
  - Endocarditis [Unknown]
  - Dyspnoea [Unknown]
  - Aspiration [Unknown]
  - Staphylococcal infection [Unknown]
  - Vascular device occlusion [Unknown]
  - Pneumonia [Unknown]
  - Thrombosis [Unknown]
  - Wheezing [Unknown]
  - Anxiety [Unknown]
  - Soft tissue disorder [Unknown]
  - Transferrin saturation decreased [Unknown]
  - Cardiac disorder [Unknown]
  - Localised infection [Recovering/Resolving]
  - Ill-defined disorder [Unknown]

NARRATIVE: CASE EVENT DATE: 20200923
